FAERS Safety Report 7180512-0 (Version None)
Quarter: 2010Q4

REPORT INFORMATION
  Report Type: 
  Country: None (occurrence: None)
  Receive Date: 20101221
  Receipt Date: 20101213
  Transmission Date: 20110411
  Serious: Yes (Hospitalization)
  Sender: FDA-Public Use
  Company Number: GB-PFIZER INC-2010141372

PATIENT
  Age: 63 Year
  Sex: Male

DRUGS (4)
  1. RELISTOR [Suspect]
     Dosage: UNK
  2. LISINOPRIL [Suspect]
     Dosage: UNK
  3. OXYCONTIN [Concomitant]
  4. VIAGRA [Concomitant]

REACTIONS (4)
  - BLOOD POTASSIUM INCREASED [None]
  - CONSTIPATION [None]
  - CONTUSION [None]
  - VISUAL IMPAIRMENT [None]
